FAERS Safety Report 4280388-5 (Version None)
Quarter: 2004Q1

REPORT INFORMATION
  Report Type: 
  Country: None (occurrence: None)
  Receive Date: 20040127
  Receipt Date: 20040115
  Transmission Date: 20041129
  Serious: Yes (Life-Threatening, Hospitalization)
  Sender: FDA-Public Use
  Company Number: 04P-062-0247288-00

PATIENT
  Age: 24 Year
  Sex: Male

DRUGS (1)
  1. DEPAKENE [Suspect]
     Dosage: 30 GM, ONCE, PER ORAL
     Route: 048

REACTIONS (9)
  - COMA [None]
  - HAEMODIALYSIS [None]
  - HAEMODYNAMIC INSTABILITY [None]
  - HYPERAMMONAEMIA [None]
  - HYPOTENSION [None]
  - PNEUMONIA ASPIRATION [None]
  - RENAL FAILURE ACUTE [None]
  - THERAPEUTIC AGENT TOXICITY [None]
  - THROMBOCYTOPENIA [None]
